FAERS Safety Report 17445929 (Version 1)
Quarter: 2020Q1

REPORT INFORMATION
  Report Type: Report from Study
  Country: IT (occurrence: IT)
  Receive Date: 20200221
  Receipt Date: 20200221
  Transmission Date: 20200409
  Serious: Yes (Other)
  Sender: FDA-Public Use
  Company Number: IT-PFIZER INC-2020077182

PATIENT
  Age: 80 Year
  Sex: Female

DRUGS (13)
  1. INEGY [Concomitant]
     Active Substance: EZETIMIBE\SIMVASTATIN
     Dosage: UNK
  2. DELTACORTENE [Concomitant]
     Active Substance: PREDNISONE
     Dosage: UNK
  3. CETIRIZINE [Concomitant]
     Active Substance: CETIRIZINE HYDROCHLORIDE
     Dosage: UNK
  4. LASIX [Concomitant]
     Active Substance: FUROSEMIDE
     Dosage: UNK
  5. ARANESP [Concomitant]
     Active Substance: DARBEPOETIN ALFA
     Dosage: UNK
  6. BROMAZEPAM [Suspect]
     Active Substance: BROMAZEPAM
     Indication: ANXIETY
     Dosage: 1.5 MG, 1X/DAY
     Route: 048
     Dates: start: 20190101, end: 20191016
  7. FOLIC ACID. [Concomitant]
     Active Substance: FOLIC ACID
     Dosage: UNK
  8. PANTOPRAZOLE [Concomitant]
     Active Substance: PANTOPRAZOLE
     Dosage: UNK
  9. CALCITRIOL. [Concomitant]
     Active Substance: CALCITRIOL
     Dosage: UNK
  10. TACHIPIRINA [Concomitant]
     Active Substance: ACETAMINOPHEN
     Dosage: UNK
  11. XANAX [Suspect]
     Active Substance: ALPRAZOLAM
     Indication: ANXIETY
     Dosage: 0.5 MG, 1X/DAY
     Route: 048
     Dates: start: 20190101, end: 20191016
  12. DOXAZOSIN [Concomitant]
     Active Substance: DOXAZOSIN MESYLATE
     Dosage: UNK
  13. BISOPROLOL HEMIFUMARATE [Concomitant]
     Active Substance: BISOPROLOL FUMARATE
     Dosage: UNK

REACTIONS (4)
  - Confusional state [Recovering/Resolving]
  - Joint stiffness [Recovering/Resolving]
  - Disorientation [Recovering/Resolving]
  - Headache [Recovering/Resolving]

NARRATIVE: CASE EVENT DATE: 20191013
